FAERS Safety Report 19171237 (Version 2)
Quarter: 2022Q1

REPORT INFORMATION
  Report Type: Report from Study
  Country: US (occurrence: None)
  Receive Date: 20210423
  Receipt Date: 20220121
  Transmission Date: 20220423
  Serious: Yes (Hospitalization)
  Sender: FDA-Public Use
  Company Number: US-ROCHE-2810800

PATIENT
  Age: 69 Year
  Sex: Female
  Weight: 72.5 kg

DRUGS (3)
  1. BEVACIZUMAB [Suspect]
     Active Substance: BEVACIZUMAB
     Indication: Ovarian cancer
     Dosage: LAST ADMINISTERED ON 22/DEC/2020
     Route: 042
     Dates: start: 20201013
  2. ATEZOLIZUMAB [Suspect]
     Active Substance: ATEZOLIZUMAB
     Indication: Ovarian cancer
     Dosage: LAST ADMINISTERED ON 22/DEC/2020
     Route: 042
     Dates: start: 20201208
  3. DOXORUBICIN HYDROCHLORIDE [Suspect]
     Active Substance: DOXORUBICIN HYDROCHLORIDE
     Indication: Ovarian cancer
     Dosage: LAST ADMINISTERED ON 08/DEC/2020
     Route: 042
     Dates: start: 20201013

REACTIONS (4)
  - Stomatitis [Unknown]
  - Oral pain [Unknown]
  - Palmar-plantar erythrodysaesthesia syndrome [Unknown]
  - Rash maculo-papular [Unknown]

NARRATIVE: CASE EVENT DATE: 20201211
